FAERS Safety Report 6274694-2 (Version None)
Quarter: 2009Q3

REPORT INFORMATION
  Report Type: 
  Country: None (occurrence: None)
  Receive Date: 20090721
  Receipt Date: 20080701
  Transmission Date: 20100115
  Serious: Yes (Other)
  Sender: FDA-Public Use
  Company Number: IN-NAPPMUNDI-GBR_2008_0004188

PATIENT

DRUGS (11)
  1. MORPHINE SULFATE [Suspect]
     Indication: PAIN
     Dosage: 30 MG, Q4H
     Route: 048
  2. MORPHINE SULFATE [Interacting]
     Dosage: 10 MG, UNK
     Route: 048
  3. MORPHINE SULFATE [Interacting]
     Dosage: 20 MG, Q4H
     Route: 048
  4. MORPHINE SULFATE [Interacting]
     Dosage: 15 MG, Q4H
     Route: 048
  5. MORPHINE SULFATE [Interacting]
     Dosage: 5 MG, Q4H
     Route: 048
  6. RANITIDINE [Interacting]
     Indication: PAIN
     Dosage: 150 UNK, UNK
     Route: 065
  7. AMITRIPTYLINE [Interacting]
     Indication: PAIN
     Dosage: 25 MG, NOCTE
     Route: 065
  8. PARACETAMOL [Concomitant]
     Dosage: 375 MG, Q8H
     Route: 065
  9. PARACETAMOL [Concomitant]
     Dosage: 500 UNK, UNK
     Route: 065
  10. BISACODYL [Concomitant]
     Dosage: UNK, UNK
     Route: 065
  11. IBUPROFEN [Concomitant]
     Dosage: 400 MG, UNK
     Route: 065

REACTIONS (5)
  - DRUG INTERACTION [None]
  - MIOSIS [None]
  - OVERDOSE [None]
  - RESPIRATORY DEPRESSION [None]
  - SEDATION [None]
